FAERS Safety Report 11156208 (Version 1)
Quarter: 2015Q2

REPORT INFORMATION
  Report Type: Spontaneous
  Country: DE (occurrence: DE)
  Receive Date: 20150602
  Receipt Date: 20150602
  Transmission Date: 20150821
  Serious: Yes (Hospitalization)
  Sender: FDA-Public Use
  Company Number: DE-HOSPIRA-2880834

PATIENT
  Age: 37 Year
  Sex: Male
  Weight: 80 kg

DRUGS (14)
  1. KEVATRIL [Concomitant]
     Active Substance: GRANISETRON HYDROCHLORIDE
     Indication: PROPHYLAXIS
     Dosage: 1 AMPOULE
     Route: 042
     Dates: start: 20150416
  2. LEUCOVORIN                         /00566701/ [Concomitant]
     Active Substance: LEUCOVORIN
     Indication: COLORECTAL CANCER METASTATIC
     Dosage: DAY 1 OF EACH 14-DAY CYCLE
     Route: 042
     Dates: start: 20150416
  3. VALORON N                          /00628301/ [Concomitant]
     Active Substance: NALOXONE HYDROCHLORIDE\TILIDINE HYDROCHLORIDE
     Indication: PROCTITIS
     Route: 048
     Dates: start: 20150414
  4. 5-FLUOROURACIL                     /00098801/ [Suspect]
     Active Substance: FLUOROURACIL
     Indication: COLORECTAL CANCER METASTATIC
     Route: 042
     Dates: start: 20150416
  5. IRINOTECAN HYDROCHLORIDE. [Suspect]
     Active Substance: IRINOTECAN HYDROCHLORIDE
     Indication: COLORECTAL CANCER METASTATIC
     Dosage: DAY 1 OF EACH 14-DAY CYCLE
     Route: 042
     Dates: start: 20150416
  6. FORTECORTIN                        /00016001/ [Concomitant]
     Active Substance: DEXAMETHASONE
     Indication: PROPHYLAXIS
     Route: 042
     Dates: start: 20150416
  7. VELIPARIB [Suspect]
     Active Substance: VELIPARIB
     Indication: COLORECTAL CANCER METASTATIC
     Dosage: DAY 2 THROUGH 5 OF EACH 14-DAY CYCLE, 2 IN 1 DAY
     Route: 048
     Dates: start: 20150414
  8. NEULASTA [Concomitant]
     Active Substance: PEGFILGRASTIM
     Indication: WHITE BLOOD CELL COUNT DECREASED
     Route: 042
     Dates: start: 20150424, end: 20150424
  9. LOPERAMID [Concomitant]
     Active Substance: LOPERAMIDE
     Indication: PROCTITIS
     Route: 048
     Dates: start: 20150414, end: 2015
  10. ATROPIN                            /00002802/ [Concomitant]
     Indication: VERTIGO
     Dosage: 0.5 AMPOULE
     Dates: start: 20150416, end: 20150416
  11. NOVALGIN [Concomitant]
     Active Substance: METAMIZOLE SODIUM
     Indication: PROCTITIS
     Route: 048
     Dates: start: 20150423, end: 2015
  12. ATROPIN                            /00002802/ [Concomitant]
     Indication: PROPHYLAXIS
     Dosage: 0.5 AMPOULE
     Dates: start: 20150416
  13. DEXAMETHASONE. [Concomitant]
     Active Substance: DEXAMETHASONE
     Indication: PROCTITIS
     Route: 048
     Dates: start: 20150414, end: 20150424
  14. IVEMEND [Concomitant]
     Active Substance: FOSAPREPITANT DIMEGLUMINE
     Indication: PROPHYLAXIS
     Route: 042
     Dates: start: 20150416

REACTIONS (1)
  - Proctitis [Unknown]

NARRATIVE: CASE EVENT DATE: 20150414
